FAERS Safety Report 21435101 (Version 1)
Quarter: 2022Q4

REPORT INFORMATION
  Report Type: Spontaneous
  Country: FR (occurrence: FR)
  Receive Date: 20221010
  Receipt Date: 20221010
  Transmission Date: 20230112
  Serious: Yes (Hospitalization)
  Sender: FDA-Public Use
  Company Number: None

PATIENT
  Age: 20 Year
  Sex: Female
  Weight: 48 kg

DRUGS (2)
  1. PRIVIGEN [Suspect]
     Active Substance: HUMAN IMMUNOGLOBULIN G
     Indication: Multifocal motor neuropathy
     Dosage: 2 MILLIGRAM/KILOGRAM
     Route: 042
     Dates: start: 20220927, end: 20220928
  2. PRIVIGEN [Suspect]
     Active Substance: HUMAN IMMUNOGLOBULIN G
     Dosage: 100G SPREAD OVER 3 DAYS EVERY CYCLE
     Route: 042
     Dates: start: 20220930, end: 20220930

REACTIONS (4)
  - Nausea [Recovered/Resolved]
  - Pyrexia [Recovering/Resolving]
  - Phonophobia [Recovered/Resolved]
  - Headache [Recovering/Resolving]

NARRATIVE: CASE EVENT DATE: 20220928
